FAERS Safety Report 25518710 (Version 1)
Quarter: 2025Q3

REPORT INFORMATION
  Report Type: Spontaneous
  Country: EU (occurrence: EU)
  Receive Date: 20250704
  Receipt Date: 20250704
  Transmission Date: 20251020
  Serious: Yes (Other)
  Sender: CSL BEHRING
  Company Number: EU-Vifor Pharma-VIT-2024-03613

PATIENT
  Sex: Male
  Weight: 105 kg

DRUGS (33)
  1. DIFELIKEFALIN ACETATE [Suspect]
     Active Substance: DIFELIKEFALIN ACETATE
     Indication: Chronic kidney disease-associated pruritus
     Route: 065
  2. DIFELIKEFALIN ACETATE [Suspect]
     Active Substance: DIFELIKEFALIN ACETATE
     Dosage: 50 ?G, TIW
     Route: 065
     Dates: start: 20240220, end: 20240318
  3. DIFELIKEFALIN ACETATE [Suspect]
     Active Substance: DIFELIKEFALIN ACETATE
     Dosage: 25 ?G, TIW
     Route: 065
     Dates: start: 20240327
  4. PREGABALIN [Concomitant]
     Active Substance: PREGABALIN
     Indication: Chronic kidney disease-associated pruritus
     Dosage: 50 MG, QD
     Dates: start: 20240226
  5. PREGABALIN [Concomitant]
     Active Substance: PREGABALIN
     Dates: start: 20230727, end: 20240311
  6. PREGABALIN [Concomitant]
     Active Substance: PREGABALIN
     Dosage: 50 MG, QD
     Dates: start: 20240318
  7. PRAMIPEXOLE [Concomitant]
     Active Substance: PRAMIPEXOLE
     Indication: Chronic kidney disease-associated pruritus
     Dates: start: 20230104, end: 20240311
  8. HYDROXYZINE [Concomitant]
     Active Substance: HYDROXYZINE HYDROCHLORIDE
     Indication: Chronic kidney disease-associated pruritus
     Dates: start: 20200609
  9. PANTOPRAZOLE [Concomitant]
     Active Substance: PANTOPRAZOLE
     Indication: Prophylaxis
     Dosage: 40 MG, QD
     Dates: start: 20201118
  10. INSULIN ASPART [Concomitant]
     Active Substance: INSULIN ASPART
     Indication: Diabetes mellitus
     Dates: start: 20211026
  11. INSULIN DEGLUDEC [Concomitant]
     Active Substance: INSULIN DEGLUDEC
     Indication: Diabetes mellitus
     Dates: start: 20190207
  12. VITAMIN D3 [Concomitant]
     Active Substance: CHOLECALCIFEROL
     Indication: Vitamin D deficiency
     Dosage: 35 ?G, BID
     Dates: start: 20190207
  13. VITAMIN B COMPLEX [Concomitant]
     Active Substance: CYANOCOBALAMIN\DEXPANTHENOL\NIACINAMIDE\PYRIDOXINE HYDROCHLORIDE\RIBOFLAVIN 5^-PHOSPHATE SODIUM\THIA
     Indication: Dialysis
     Dosage: 1 DF, QD
     Dates: start: 20230325
  14. VITAMIN C [Concomitant]
     Active Substance: ASCORBIC ACID
     Indication: Dialysis
     Dosage: 80 MG, QD
     Dates: start: 20230525
  15. DALTEPARIN [Concomitant]
     Active Substance: DALTEPARIN
     Indication: Anticoagulant therapy
     Dates: start: 20230519
  16. CLOPIDOGREL [Concomitant]
     Active Substance: CLOPIDOGREL BISULFATE
     Indication: Anticoagulant therapy
     Dosage: 75 MG, QD
     Dates: start: 20240119
  17. VENOFER [Concomitant]
     Active Substance: IRON SUCROSE
     Indication: Mineral supplementation
     Dosage: 100 MG, QW
     Dates: start: 20230621
  18. DARBEPOETIN ALFA [Concomitant]
     Active Substance: DARBEPOETIN ALFA
     Indication: Erythropoietin deficiency anaemia
     Dosage: 80 ?G, QW
     Dates: start: 20230704
  19. ALBUMIN HUMAN [Concomitant]
     Active Substance: ALBUMIN HUMAN
     Indication: Hypotension
     Dates: start: 20230801
  20. DOXAZOSIN [Concomitant]
     Active Substance: DOXAZOSIN MESYLATE
     Indication: Hypertension
     Dosage: 4 MG, QD
     Dates: start: 20200609
  21. FUROSEMIDE [Concomitant]
     Active Substance: FUROSEMIDE
     Indication: Diuretic therapy
     Dosage: 500 MG, BID
     Dates: start: 20230222
  22. RAMIPRIL [Concomitant]
     Active Substance: RAMIPRIL
     Indication: Hypertension
     Dosage: 10 MG, QD
     Dates: start: 20220919
  23. ATORVASTATIN [Concomitant]
     Active Substance: ATORVASTATIN
     Indication: Blood cholesterol decreased
     Dosage: 40 MG, QD
     Dates: start: 20190207
  24. MOMETASONE FUROATE [Concomitant]
     Active Substance: MOMETASONE FUROATE
     Indication: Eczema
     Dosage: 1 THIN LAYER, QD
     Dates: start: 20240119
  25. CLOBETASOL [Concomitant]
     Active Substance: CLOBETASOL
     Indication: Eczema
     Dosage: 1 THIN LAYER, QD
     Dates: start: 20211026
  26. SILDENAFIL [Concomitant]
     Active Substance: SILDENAFIL
     Indication: Erectile dysfunction
     Dosage: 25 MG, BID
     Dates: start: 20211026
  27. GLUCAGON [Concomitant]
     Active Substance: GLUCAGON
     Indication: Shock hypoglycaemic
     Dates: start: 20230921
  28. ALLOPURINOL [Concomitant]
     Active Substance: ALLOPURINOL
     Indication: Blood uric acid
     Dosage: 300 MG, BID
     Dates: start: 20230523
  29. ALLOPURINOL [Concomitant]
     Active Substance: ALLOPURINOL
     Indication: Arthritis
  30. EMLA [Concomitant]
     Active Substance: LIDOCAINE\PRILOCAINE
     Indication: Catheter site pain
     Dates: start: 20230704
  31. ACETAMINOPHEN [Concomitant]
     Active Substance: ACETAMINOPHEN
     Indication: Pain
     Dosage: 1330 MG, TID
     Dates: start: 20220919
  32. PRAMIPEXOLE [Concomitant]
     Active Substance: PRAMIPEXOLE
     Indication: Restless legs syndrome
     Dosage: 0.088 MG, QOD
     Dates: start: 20230104
  33. VILANTEROL [Concomitant]
     Active Substance: VILANTEROL
     Indication: Chronic obstructive pulmonary disease
     Dosage: 1 DF, QD
     Dates: start: 20211026

REACTIONS (2)
  - Fatigue [Recovered/Resolved]
  - Somnolence [Recovered/Resolved]

NARRATIVE: CASE EVENT DATE: 20240311
